FAERS Safety Report 4301539-X (Version None)
Quarter: 2004Q1

REPORT INFORMATION
  Report Type: 
  Country: None (occurrence: None)
  Receive Date: 20040219
  Receipt Date: 20040210
  Transmission Date: 20041129
  Serious: Yes (Other)
  Sender: FDA-Public Use
  Company Number: US-JNJFOC-20040102964

PATIENT
  Age: 43 Year
  Sex: Female
  Weight: 57.6068 kg

DRUGS (3)
  1. SPORANOX [Suspect]
     Indication: ASPERGILLOSIS
     Dosage: 200 MG, 2 IN 1 DAY
     Dates: start: 20031107, end: 20040113
  2. SPORANOX [Suspect]
     Indication: OTITIS EXTERNA FUNGAL
     Dosage: 200 MG, 2 IN 1 DAY
     Dates: start: 20031107, end: 20040113
  3. PRENATAL VITAMINS (PRENATAL VITAMINS) [Concomitant]

REACTIONS (5)
  - ABORTION SPONTANEOUS [None]
  - COMPLICATIONS OF MATERNAL EXPOSURE TO THERAPEUTIC DRUGS [None]
  - ECTOPIC PREGNANCY [None]
  - MATERNAL DRUGS AFFECTING FOETUS [None]
  - PREGNANCY [None]
